FAERS Safety Report 8583293-9 (Version None)
Quarter: 2012Q3

REPORT INFORMATION
  Report Type: 
  Country: None (occurrence: None)
  Receive Date: 20120809
  Receipt Date: 20120628
  Transmission Date: 20120928
  Serious: No
  Sender: FDA-Public Use
  Company Number: US-ASTRAZENECA-2011SE64567

PATIENT
  Age: 66 Year
  Sex: Female

DRUGS (1)
  1. NEXIUM [Suspect]
     Dosage: 2 NEXIUM PER DAY
     Route: 048

REACTIONS (5)
  - GASTRIC DISORDER [None]
  - APHAGIA [None]
  - DRUG DOSE OMISSION [None]
  - GASTRIC ULCER [None]
  - PAIN [None]
